FAERS Safety Report 4469823-7 (Version None)
Quarter: 2004Q4

REPORT INFORMATION
  Report Type: 
  Country: None (occurrence: None)
  Receive Date: 20041008
  Receipt Date: 20040928
  Transmission Date: 20050328
  Serious: Yes (Other)
  Sender: FDA-Public Use
  Company Number: FR-GLAXOSMITHKLINE-B0347372A

PATIENT
  Age: 33 Year
  Sex: Male

DRUGS (1)
  1. ZYBAN [Suspect]
     Indication: EX-SMOKER
     Dosage: 150MG UNKNOWN
     Dates: start: 20040801, end: 20040901

REACTIONS (3)
  - DIPLOPIA [None]
  - IIIRD NERVE PARALYSIS [None]
  - NYSTAGMUS [None]
